FAERS Safety Report 9158002 (Version 3)
Quarter: 2013Q2

REPORT INFORMATION
  Report Type: Spontaneous
  Country: FR (occurrence: FR)
  Receive Date: 20130312
  Receipt Date: 20130411
  Transmission Date: 20140414
  Serious: Yes (Other)
  Sender: FDA-Public Use
  Company Number: FR-PFIZER INC-2013081259

PATIENT
  Age: 52 Year
  Sex: Male

DRUGS (2)
  1. DOSTINEX [Suspect]
     Indication: PITUITARY TUMOUR BENIGN
     Dosage: 0.5 DF, WEEKLY
  2. DOSTINEX [Suspect]
     Indication: HYPERPROLACTINAEMIA
     Dosage: 3 MG, WEEKLY IN 2 INTAKES

REACTIONS (3)
  - Psychomotor retardation [Not Recovered/Not Resolved]
  - Depression [Not Recovered/Not Resolved]
  - Fatigue [Not Recovered/Not Resolved]
